FAERS Safety Report 9454267 (Version 2)
Quarter: 2013Q3

REPORT INFORMATION
  Report Type: Spontaneous
  Country: JP (occurrence: JP)
  Receive Date: 20130812
  Receipt Date: 20130821
  Transmission Date: 20140515
  Serious: Yes (Death)
  Sender: FDA-Public Use
  Company Number: JP-ROCHE-1257487

PATIENT
  Age: 59 Year
  Sex: Female
  Weight: 77 kg

DRUGS (13)
  1. AVASTIN [Suspect]
     Indication: BREAST CANCER METASTATIC
     Dosage: DOSAGE IS UNCERTAIN.
     Route: 041
     Dates: start: 20121123, end: 20121123
  2. BAYASPIRIN [Suspect]
     Indication: PROPHYLAXIS
     Route: 048
     Dates: start: 20100210
  3. TAXOL [Concomitant]
     Indication: BREAST CANCER METASTATIC
     Route: 041
     Dates: start: 20121123, end: 20121123
  4. THYRADIN-S [Concomitant]
     Indication: HYPOTHYROIDISM
     Route: 048
     Dates: start: 20051130
  5. OXYCONTIN [Concomitant]
     Indication: PAIN
     Route: 048
     Dates: start: 20080609
  6. TAKEPRON [Concomitant]
     Indication: PROPHYLAXIS
     Route: 048
     Dates: start: 20090715
  7. COCARL [Concomitant]
     Indication: PAIN
     Route: 048
     Dates: start: 20091229
  8. HYSRON H [Concomitant]
     Indication: BREAST CANCER METASTATIC
     Route: 048
     Dates: start: 20100210
  9. LOXONIN [Concomitant]
     Indication: PAIN
     Route: 048
     Dates: start: 20120411
  10. ASPARA-CA [Concomitant]
     Indication: PROPHYLAXIS
     Route: 048
     Dates: start: 20120801
  11. ALFAROL [Concomitant]
     Indication: PROPHYLAXIS
     Route: 048
     Dates: start: 20120801
  12. DECADRON [Concomitant]
     Indication: PROPHYLAXIS
     Route: 042
     Dates: start: 20121123, end: 20121123
  13. ZANTAC [Concomitant]
     Indication: PROPHYLAXIS
     Route: 042
     Dates: start: 20121123, end: 20121123

REACTIONS (1)
  - Cerebral haemorrhage [Fatal]
